FAERS Safety Report 6160069-3 (Version None)
Quarter: 2009Q2

REPORT INFORMATION
  Report Type: 
  Country: None (occurrence: None)
  Receive Date: 20090415
  Receipt Date: 20090402
  Transmission Date: 20091009
  Serious: Yes (Life-Threatening, Other)
  Sender: FDA-Public Use
  Company Number: ACO_00532_2009

PATIENT
  Age: 37 Year
  Sex: Male

DRUGS (1)
  1. SIRDALUD /0074702/ (SIRDALUD - TIZANIDINE HYDROCHLORIDE) 2 MG (NOT SPE [Suspect]
     Indication: MUSCLE CONTRACTURE
     Dosage: (2 MG ORAL)
     Route: 048
     Dates: start: 20061101

REACTIONS (1)
  - ANAPHYLACTIC SHOCK [None]
